FAERS Safety Report 19871287 (Version 1)
Quarter: 2021Q3

REPORT INFORMATION
  Report Type: Spontaneous
  Country: US (occurrence: US)
  Receive Date: 20210922
  Receipt Date: 20210922
  Transmission Date: 20211014
  Serious: No
  Sender: FDA-Public Use
  Company Number: None

PATIENT
  Age: 77 Year
  Sex: Female
  Weight: 117 kg

DRUGS (11)
  1. ONDANSETRON 8MG [Concomitant]
     Active Substance: ONDANSETRON
  2. LYRICA 350MG [Concomitant]
  3. PIQRAY [Suspect]
     Active Substance: ALPELISIB
     Indication: BREAST CANCER
     Route: 048
     Dates: start: 20210727, end: 20210901
  4. ATORVASTATIN 40MG [Concomitant]
     Active Substance: ATORVASTATIN
  5. LEVEMIR [Concomitant]
     Active Substance: INSULIN DETEMIR
  6. LEVOTHYROXINE 100MCG [Concomitant]
     Active Substance: LEVOTHYROXINE
  7. GABAPENTIN 300MG [Concomitant]
     Active Substance: GABAPENTIN
  8. ALBUTEROL SULFATE. [Concomitant]
     Active Substance: ALBUTEROL SULFATE
  9. VITAMIN D 1.25MG [Concomitant]
  10. FUROSEMIDE 20MG [Concomitant]
     Active Substance: FUROSEMIDE
  11. HYDRALAZINE 25MG [Concomitant]
     Active Substance: HYDRALAZINE HYDROCHLORIDE

REACTIONS (1)
  - Hyperglycaemia [None]

NARRATIVE: CASE EVENT DATE: 20210922
